FAERS Safety Report 13754698 (Version 12)
Quarter: 2018Q3

REPORT INFORMATION
  Report Type: Report from Study
  Country: GB (occurrence: GB)
  Receive Date: 20170714
  Receipt Date: 20180813
  Transmission Date: 20181010
  Serious: Yes (Hospitalization, Other)
  Sender: FDA-Public Use
  Company Number: GB-ROCHE-1954185

PATIENT
  Age: 79 Year
  Sex: Male

DRUGS (8)
  1. ESBRIET [Suspect]
     Active Substance: PIRFENIDONE
     Indication: IDIOPATHIC PULMONARY FIBROSIS
     Route: 048
     Dates: start: 20170611
  2. ESBRIET [Suspect]
     Active Substance: PIRFENIDONE
     Dosage: 1 TABLET THRICE A DAY
     Route: 048
     Dates: start: 20170710
  3. ESBRIET [Suspect]
     Active Substance: PIRFENIDONE
     Dosage: 2 TABLETS THRICE A DAY
     Route: 048
  4. ESBRIET [Suspect]
     Active Substance: PIRFENIDONE
     Dosage: 12 TABLETS A DAY
     Route: 048
  5. ESBRIET [Suspect]
     Active Substance: PIRFENIDONE
     Route: 048
     Dates: start: 20170618
  6. ESBRIET [Suspect]
     Active Substance: PIRFENIDONE
     Dosage: DOSE DECREASED TO 1 TABLET
     Route: 048
  7. RANITIDINE. [Concomitant]
     Active Substance: RANITIDINE
  8. LANSOPRAZOLE. [Concomitant]
     Active Substance: LANSOPRAZOLE

REACTIONS (22)
  - Lethargy [Unknown]
  - Cough [Not Recovered/Not Resolved]
  - Muscle spasms [Not Recovered/Not Resolved]
  - Confusional state [Unknown]
  - Gastrooesophageal reflux disease [Unknown]
  - Decreased appetite [Unknown]
  - Depression [Unknown]
  - Blood sodium decreased [Unknown]
  - Muscular weakness [Not Recovered/Not Resolved]
  - Atrial fibrillation [Unknown]
  - Dizziness [Unknown]
  - Muscle atrophy [Unknown]
  - Hiatus hernia [Unknown]
  - Skin warm [Unknown]
  - Abdominal distension [Unknown]
  - Rash pruritic [Unknown]
  - Fatigue [Unknown]
  - Asthenia [Unknown]
  - Balance disorder [Unknown]
  - Lower respiratory tract infection [Unknown]
  - Constipation [Unknown]
  - Dyspnoea [Unknown]

NARRATIVE: CASE EVENT DATE: 20170904
